FAERS Safety Report 19753180 (Version 1)
Quarter: 2021Q3

REPORT INFORMATION
  Report Type: Spontaneous
  Country: US (occurrence: US)
  Receive Date: 20210826
  Receipt Date: 20210826
  Transmission Date: 20211014
  Serious: No
  Sender: FDA-Public Use
  Company Number: US-SA-2021SA279157

PATIENT
  Age: 50 Year
  Sex: Male

DRUGS (1)
  1. DUPIXENT [Suspect]
     Active Substance: DUPILUMAB
     Indication: DERMATITIS PSORIASIFORM
     Dosage: 300 MG, QOW

REACTIONS (3)
  - Product use in unapproved indication [Unknown]
  - Pyrexia [Unknown]
  - Quarantine [Unknown]

NARRATIVE: CASE EVENT DATE: 2017
